FAERS Safety Report 23114990 (Version 1)
Quarter: 2023Q4

REPORT INFORMATION
  Report Type: Spontaneous
  Country: IN (occurrence: IN)
  Receive Date: 20231027
  Receipt Date: 20231027
  Transmission Date: 20240109
  Serious: Yes (Other)
  Sender: FDA-Public Use
  Company Number: IN-MYLANLABS-2023M1112934

PATIENT
  Age: 51 Year
  Sex: Male

DRUGS (3)
  1. CARBOPLATIN [Suspect]
     Active Substance: CARBOPLATIN
     Indication: Oropharyngeal cancer
     Dosage: UNK UNK, CYCLE
     Route: 065
  2. CISPLATIN [Suspect]
     Active Substance: CISPLATIN
     Indication: Oropharyngeal cancer
     Dosage: UNK, CYCLE
     Route: 065
  3. PACLITAXEL [Suspect]
     Active Substance: PACLITAXEL
     Indication: Oropharyngeal cancer
     Dosage: 175 MILLIGRAM/SQ. METER, CYCLE
     Route: 065

REACTIONS (1)
  - Drug ineffective [Unknown]
